FAERS Safety Report 9738742 (Version 1)
Quarter: 2013Q4

REPORT INFORMATION
  Report Type: Spontaneous
  Country: IT (occurrence: IT)
  Receive Date: 20131209
  Receipt Date: 20131209
  Transmission Date: 20140711
  Serious: Yes (Other)
  Sender: FDA-Public Use
  Company Number: IT-ACCORD-020612

PATIENT
  Age: 57 Year
  Sex: Male

DRUGS (2)
  1. OMNIC [Concomitant]
     Indication: BENIGN PROSTATIC HYPERPLASIA
  2. GEMCITABINE [Suspect]
     Indication: LUNG NEOPLASM MALIGNANT
     Route: 042
     Dates: start: 20121019, end: 20130801

REACTIONS (3)
  - Hyperpyrexia [Unknown]
  - Neutropenia [Unknown]
  - Rash [Unknown]
